FAERS Safety Report 11079532 (Version 6)
Quarter: 2015Q3

REPORT INFORMATION
  Report Type: Spontaneous
  Country: US (occurrence: US)
  Receive Date: 20150430
  Receipt Date: 20150923
  Transmission Date: 20151125
  Serious: Yes (Other)
  Sender: FDA-Public Use
  Company Number: US-GLAXOSMITHKLINE-US2015GSK058730

PATIENT
  Sex: Male

DRUGS (1)
  1. VOTRIENT [Suspect]
     Active Substance: PAZOPANIB HYDROCHLORIDE
     Indication: RENAL CANCER
     Dosage: 800 MG, QD
     Route: 065
     Dates: start: 20150320

REACTIONS (8)
  - Noninfective gingivitis [Unknown]
  - Nausea [Unknown]
  - Hair colour changes [Unknown]
  - Ageusia [Unknown]
  - Diarrhoea [Unknown]
  - Hip surgery [Unknown]
  - Gingival pain [Unknown]
  - Night sweats [Unknown]
